FAERS Safety Report 7672349-0 (Version None)
Quarter: 2011Q3

REPORT INFORMATION
  Report Type: 
  Country: None (occurrence: None)
  Receive Date: 20110803
  Receipt Date: 20110721
  Transmission Date: 20111222
  Serious: Yes (Hospitalization, Disabling, Other)
  Sender: FDA-Public Use
  Company Number: 2011SP015421

PATIENT
  Age: 27 Year
  Sex: Female
  Weight: 67.1324 kg

DRUGS (2)
  1. NUVARING [Suspect]
     Indication: CONTRACEPTION
  2. PREDNISONE [Suspect]
     Indication: HEADACHE

REACTIONS (18)
  - HEART RATE IRREGULAR [None]
  - TACHYCARDIA [None]
  - HAEMATOMA [None]
  - MATERNAL EXPOSURE BEFORE PREGNANCY [None]
  - PROTEIN S ABNORMAL [None]
  - HYPOAESTHESIA [None]
  - ANTIPHOSPHOLIPID ANTIBODIES POSITIVE [None]
  - AXILLARY MASS [None]
  - PAIN IN EXTREMITY [None]
  - HYPERCOAGULATION [None]
  - VASOSPASM [None]
  - CYANOSIS [None]
  - VOMITING [None]
  - BLOOD HOMOCYSTEINE INCREASED [None]
  - MIGRAINE [None]
  - ARTERIAL THROMBOSIS LIMB [None]
  - RAYNAUD'S PHENOMENON [None]
  - PULSE ABSENT [None]
